FAERS Safety Report 21281792 (Version 1)
Quarter: 2022Q3

REPORT INFORMATION
  Report Type: Spontaneous
  Country: US (occurrence: US)
  Receive Date: 20220901
  Receipt Date: 20220901
  Transmission Date: 20221027
  Serious: No
  Sender: FDA-Public Use
  Company Number: US-ABBVIE-22K-163-4516244-00

PATIENT
  Sex: Female
  Weight: 77.634 kg

DRUGS (8)
  1. HUMIRA [Suspect]
     Active Substance: ADALIMUMAB
     Indication: Rheumatoid arthritis
     Route: 058
     Dates: start: 20220701
  2. PFIZER-BIONTECH COVID-19 VACCINE [Concomitant]
     Active Substance: TOZINAMERAN
     Indication: COVID-19 immunisation
     Dosage: FIRST DOSE
     Route: 030
     Dates: start: 20210303, end: 20210303
  3. PFIZER-BIONTECH COVID-19 VACCINE [Concomitant]
     Active Substance: TOZINAMERAN
     Dosage: SECOND DOSE
     Route: 030
     Dates: start: 20210324, end: 20210324
  4. PFIZER-BIONTECH COVID-19 VACCINE [Concomitant]
     Active Substance: TOZINAMERAN
     Dosage: THIRD DOSE
     Route: 030
     Dates: start: 20210819, end: 20210819
  5. PFIZER-BIONTECH COVID-19 VACCINE [Concomitant]
     Active Substance: TOZINAMERAN
     Dosage: FOURTH DOSE
     Route: 030
     Dates: start: 20220330, end: 20220330
  6. LIPITOR [Concomitant]
     Active Substance: ATORVASTATIN CALCIUM
     Indication: Blood cholesterol
  7. VITAMIN D [Concomitant]
     Active Substance: VITAMIN D NOS
     Indication: Supplementation therapy
  8. AMBIEN [Concomitant]
     Active Substance: ZOLPIDEM TARTRATE
     Indication: Insomnia

REACTIONS (4)
  - Illness [Not Recovered/Not Resolved]
  - Bronchitis [Unknown]
  - Rhinitis [Unknown]
  - Hypersensitivity [Unknown]

NARRATIVE: CASE EVENT DATE: 20220101
